FAERS Safety Report 16077135 (Version 1)
Quarter: 2019Q2

REPORT INFORMATION
  Report Type: Spontaneous
  Country: US (occurrence: US)
  Receive Date: 20190314
  Receipt Date: 20190314
  Transmission Date: 20190711
  Serious: Yes (Death)
  Sender: FDA-Public Use
  Company Number: None

PATIENT
  Age: 83 Year
  Sex: Female
  Weight: 55 kg

DRUGS (1)
  1. ELIQUIS [Suspect]
     Active Substance: APIXABAN
     Indication: ATRIAL FIBRILLATION
     Route: 048
     Dates: start: 20181114, end: 20190305

REACTIONS (4)
  - Catheter site haemorrhage [None]
  - Haemorrhage intracranial [None]
  - End stage renal disease [None]
  - Haemodialysis [None]

NARRATIVE: CASE EVENT DATE: 20190305
